FAERS Safety Report 5950864-5 (Version None)
Quarter: 2008Q4

REPORT INFORMATION
  Report Type: 
  Country: None (occurrence: None)
  Receive Date: 20081112
  Receipt Date: 20081104
  Transmission Date: 20090506
  Serious: Yes (Death, Other)
  Sender: FDA-Public Use
  Company Number: DE-GILEAD-2008-0016070

PATIENT
  Sex: Male

DRUGS (5)
  1. TRUVADA [Suspect]
     Dates: end: 20070901
  2. SUSTIVA [Concomitant]
     Dates: start: 20000101, end: 20070901
  3. PANTOZOL [Concomitant]
  4. BISOPROLOL FUMARATE [Concomitant]
  5. DURAGESIC-100 [Concomitant]

REACTIONS (2)
  - ACUTE MYELOID LEUKAEMIA [None]
  - MYELODYSPLASTIC SYNDROME [None]
